FAERS Safety Report 13048712 (Version 1)
Quarter: 2016Q4

REPORT INFORMATION
  Report Type: Spontaneous
  Country: US (occurrence: US)
  Receive Date: 20161221
  Receipt Date: 20161221
  Transmission Date: 20170207
  Serious: No
  Sender: FDA-Public Use
  Company Number: US-AMGEN-USASP2016174169

PATIENT
  Sex: Male

DRUGS (2)
  1. PREDNISONE. [Concomitant]
     Active Substance: PREDNISONE
     Dosage: 0.5 MG/KG/D
  2. ENBREL [Suspect]
     Active Substance: ETANERCEPT
     Indication: NECROBIOSIS LIPOIDICA DIABETICORUM
     Dosage: 25 MG, 2 TIMES/WK
     Route: 065

REACTIONS (1)
  - Off label use [Unknown]
